FAERS Safety Report 6864379-3 (Version None)
Quarter: 2010Q3

REPORT INFORMATION
  Report Type: 
  Country: None (occurrence: None)
  Receive Date: 20100721
  Receipt Date: 20080530
  Transmission Date: 20110219
  Serious: Yes (Other)
  Sender: FDA-Public Use
  Company Number: US-PFIZER INC-2008025936

PATIENT
  Sex: Female
  Weight: 69.09 kg

DRUGS (3)
  1. CHANTIX [Suspect]
     Indication: SMOKING CESSATION THERAPY
     Dates: start: 20080218, end: 20080314
  2. BENADRYL [Concomitant]
     Indication: HYPERSENSITIVITY
  3. IBUPROFEN [Concomitant]

REACTIONS (5)
  - AGGRESSION [None]
  - AGITATION [None]
  - DEPRESSION [None]
  - INSOMNIA [None]
  - SUICIDAL IDEATION [None]
